FAERS Safety Report 7700911-5 (Version None)
Quarter: 2011Q3

REPORT INFORMATION
  Report Type: 
  Country: None (occurrence: None)
  Receive Date: 20110822
  Receipt Date: 20110810
  Transmission Date: 20111222
  Serious: Yes (Hospitalization, Other)
  Sender: FDA-Public Use
  Company Number: PHHY2011JP63665

PATIENT
  Age: 68 Year
  Sex: Male

DRUGS (2)
  1. ZOMETA [Suspect]
     Dosage: 4 MG, UNK
     Route: 041
     Dates: start: 20110617
  2. GEMZAR [Suspect]
     Route: 041
     Dates: start: 20110614

REACTIONS (4)
  - NEOPLASM PROGRESSION [None]
  - METASTASIS [None]
  - FEMUR FRACTURE [None]
  - NEOPLASM MALIGNANT [None]
